FAERS Safety Report 24354119 (Version 1)
Quarter: 2024Q3

REPORT INFORMATION
  Report Type: Spontaneous
  Country: IT (occurrence: IT)
  Receive Date: 20240923
  Receipt Date: 20240923
  Transmission Date: 20241016
  Serious: Yes (Other)
  Sender: AMERICAN REGENT
  Company Number: IT-AMERICAN REGENT INC-2024003596

PATIENT
  Sex: Male

DRUGS (2)
  1. FERINJECT [Suspect]
     Active Substance: FERRIC CARBOXYMALTOSE
     Indication: Product used for unknown indication
     Dosage: WEEKLY (1000 MILLIGRAM, 1 IN 1 WK)
  2. FERINJECT [Suspect]
     Active Substance: FERRIC CARBOXYMALTOSE
     Dosage: SCHEDULED DOSE OF 1000 MG WEEKLY PLANNED FOR 1 HOUR (1 IN 1 WK)

REACTIONS (2)
  - Thrombocytopenia [Unknown]
  - Urticaria [Unknown]
